FAERS Safety Report 4495041-2 (Version None)
Quarter: 2004Q4

REPORT INFORMATION
  Report Type: 
  Country: None (occurrence: None)
  Receive Date: 20041108
  Receipt Date: 20040528
  Transmission Date: 20050328
  Serious: Yes (Death, Hospitalization)
  Sender: FDA-Public Use
  Company Number: CA-BRISTOL-MYERS SQUIBB COMPANY-12599809

PATIENT
  Age: 52 Year
  Sex: Male

DRUGS (10)
  1. ATAZANAVIR [Suspect]
     Indication: HIV INFECTION
     Route: 048
     Dates: start: 20030627, end: 20040503
  2. VIDEX EC [Suspect]
     Dates: start: 20030325, end: 20040503
  3. KALETRA [Suspect]
     Dates: start: 20030605, end: 20040503
  4. LAMIVUDINE [Suspect]
     Dates: start: 20030605, end: 20040503
  5. SPORANOX [Concomitant]
     Dates: start: 19951124
  6. SEPTRA DS [Concomitant]
     Dates: start: 20010112
  7. VIOXX [Concomitant]
     Dates: start: 20030605
  8. CALCIUM [Concomitant]
     Dates: start: 20030626
  9. ATIVAN [Concomitant]
     Dosage: AT HOUR OF SLEEP
     Dates: start: 20040311
  10. CELEXA [Concomitant]
     Dates: start: 20011122

REACTIONS (7)
  - ACQUIRED IMMUNODEFICIENCY SYNDROME [None]
  - CARDIOVASCULAR DISORDER [None]
  - CORONARY ARTERY THROMBOSIS [None]
  - MYOCARDIAL INFARCTION [None]
  - PNEUMONIA BACTERIAL [None]
  - SUDDEN CARDIAC DEATH [None]
  - VENTRICULAR HYPERTROPHY [None]
